FAERS Safety Report 7514733-1 (Version None)
Quarter: 2011Q2

REPORT INFORMATION
  Report Type: 
  Country: None (occurrence: None)
  Receive Date: 20110422
  Receipt Date: 20101018
  Transmission Date: 20111010
  Serious: Yes (Disabling)
  Sender: FDA-Public Use
  Company Number: WAES 1010USA02116

PATIENT
  Age: 10 Year
  Sex: Female

DRUGS (5)
  1. ALLEGRA [Concomitant]
  2. OMNARIS [Concomitant]
  3. SINGULAIR [Suspect]
     Indication: HYPERSENSITIVITY
     Dosage: 10 MG/DAILY/PO
     Route: 048
     Dates: end: 20101001
  4. SINGULAIR [Suspect]
     Indication: ASTHMA
     Dosage: 10 MG/DAILY/PO
     Route: 048
     Dates: end: 20101001
  5. CLARITIN [Concomitant]

REACTIONS (3)
  - INSOMNIA [None]
  - OVERDOSE [None]
  - MYALGIA [None]
